FAERS Safety Report 7302482-4 (Version None)
Quarter: 2011Q1

REPORT INFORMATION
  Report Type: 
  Country: None (occurrence: None)
  Receive Date: 20110218
  Receipt Date: 20110215
  Transmission Date: 20110831
  Serious: No
  Sender: FDA-Public Use
  Company Number: US-PFIZER INC-2010156237

PATIENT
  Sex: Female
  Weight: 53.515 kg

DRUGS (1)
  1. CELEBREX [Suspect]
     Indication: MUSCULOSKELETAL DISCOMFORT
     Dosage: 200 MG, DAILY
     Route: 048
     Dates: start: 20101101

REACTIONS (2)
  - MIGRAINE [None]
  - HEADACHE [None]
